FAERS Safety Report 24664502 (Version 1)
Quarter: 2024Q4

REPORT INFORMATION
  Report Type: Spontaneous
  Country: US (occurrence: None)
  Receive Date: 20241125
  Receipt Date: 20241125
  Transmission Date: 20250115
  Serious: No
  Sender: Public
  Company Number: None

PATIENT
  Age: 67 Year
  Sex: Male

DRUGS (1)
  1. VTAMA [Suspect]
     Active Substance: TAPINAROF
     Indication: Psoriasis
     Dosage: FREQUENCY : DAILY;?APPLY A THIN.L.AYER TO AFFECTED AREA(S) ONCE DAILY UNTIL. CL.EAR ?
     Route: 061
     Dates: start: 202407

REACTIONS (1)
  - Food poisoning [None]
